FAERS Safety Report 12068696 (Version 1)
Quarter: 2016Q1

REPORT INFORMATION
  Report Type: Spontaneous
  Country: FR (occurrence: FR)
  Receive Date: 20160211
  Receipt Date: 20160211
  Transmission Date: 20160526
  Serious: Yes (Hospitalization)
  Sender: FDA-Public Use
  Company Number: FR-ELI_LILLY_AND_COMPANY-FR201602001488

PATIENT
  Age: 43 Year
  Sex: Female

DRUGS (7)
  1. CISPLATINE [Suspect]
     Active Substance: CISPLATIN
     Indication: METASTATIC BRONCHIAL CARCINOMA
     Dosage: UNK
     Route: 042
     Dates: start: 20150901
  2. CORTANCYL [Concomitant]
     Active Substance: PREDNISONE
  3. FOLIC ACID. [Concomitant]
     Active Substance: FOLIC ACID
  4. SKENAN [Concomitant]
     Active Substance: MORPHINE SULFATE
  5. DOLIPRANE [Concomitant]
     Active Substance: ACETAMINOPHEN
  6. AVASTIN [Suspect]
     Active Substance: BEVACIZUMAB
     Indication: METASTATIC BRONCHIAL CARCINOMA
     Dosage: 1 DF, CYCLICAL EVERY 3 WEEKS
     Route: 042
     Dates: start: 20150901, end: 20151208
  7. ALIMTA [Suspect]
     Active Substance: PEMETREXED DISODIUM
     Indication: METASTATIC BRONCHIAL CARCINOMA
     Dosage: UNK
     Route: 042
     Dates: start: 20150901

REACTIONS (4)
  - Jejunal perforation [Recovered/Resolved with Sequelae]
  - Ileus [Recovered/Resolved]
  - Abscess intestinal [Recovered/Resolved]
  - Off label use [Recovered/Resolved]

NARRATIVE: CASE EVENT DATE: 20150901
